FAERS Safety Report 10876750 (Version 1)
Quarter: 2015Q1

REPORT INFORMATION
  Report Type: Spontaneous
  Country: US (occurrence: US)
  Receive Date: 20150302
  Receipt Date: 20150302
  Transmission Date: 20150721
  Serious: Yes (Hospitalization)
  Sender: FDA-Public Use
  Company Number: US-BEH-2015049059

PATIENT
  Sex: Female
  Weight: 77 kg

DRUGS (24)
  1. PERFOROMIST [Concomitant]
     Active Substance: FORMOTEROL FUMARATE DIHYDRATE
  2. PROBIOTIC [Concomitant]
     Active Substance: PROBIOTICS NOS
  3. CHLORPHENIRAMINE/METHSCOPOLAM [Concomitant]
  4. SINGULAIR [Concomitant]
     Active Substance: MONTELUKAST SODIUM
  5. HIZENTRA [Suspect]
     Active Substance: HUMAN IMMUNOGLOBULIN G
     Indication: IMMUNODEFICIENCY COMMON VARIABLE
     Route: 058
  6. PREDNISONE. [Concomitant]
     Active Substance: PREDNISONE
  7. VIATIN CALCIUM [Concomitant]
  8. DIPHENHYDRAMINE [Concomitant]
     Active Substance: DIPHENHYDRAMINE
  9. PROTONIX DR [Concomitant]
  10. ZADITOR EYE DROPS [Concomitant]
  11. ZINC [Concomitant]
     Active Substance: ZINC\ZINC CHLORIDE
  12. BUDESONIDE. [Concomitant]
     Active Substance: BUDESONIDE
  13. DILTIAZEM HYDROCHLORIDE EXTENDED RELEASE [Concomitant]
     Active Substance: DILTIAZEM HYDROCHLORIDE
  14. HYDROCODONE BITARTRATE AND ACETAMINOPHEN [Concomitant]
     Active Substance: ACETAMINOPHEN\HYDROCODONE BITARTRATE
  15. LEVOTHYROXINE [Concomitant]
     Active Substance: LEVOTHYROXINE
  16. MULTIVITAMIN [Concomitant]
     Active Substance: VITAMINS
  17. LIDOCAINE. [Concomitant]
     Active Substance: LIDOCAINE
  18. EPIPEN [Concomitant]
     Active Substance: EPINEPHRINE
  19. B COMPLEX C [Concomitant]
  20. TUMS [Concomitant]
     Active Substance: CALCIUM CARBONATE
  21. MOTRIN [Concomitant]
     Active Substance: IBUPROFEN
  22. MAGNESIUM [Concomitant]
     Active Substance: MAGNESIUM
  23. ACETAMINOPHEN. [Concomitant]
     Active Substance: ACETAMINOPHEN
  24. BENTYL [Concomitant]
     Active Substance: DICYCLOMINE HYDROCHLORIDE

REACTIONS (2)
  - Infusion site erythema [Recovered/Resolved]
  - Asthma [Unknown]
